FAERS Safety Report 5369381-9 (Version None)
Quarter: 2007Q2

REPORT INFORMATION
  Report Type: 
  Country: None (occurrence: None)
  Receive Date: 20070625
  Receipt Date: 20070515
  Transmission Date: 20071010
  Serious: No
  Sender: FDA-Public Use
  Company Number: US-ASTRAZENECA-2007UW08096

PATIENT
  Age: 55 Year
  Sex: Female
  Weight: 50 kg

DRUGS (2)
  1. CRESTOR [Suspect]
     Route: 048
  2. FOSAMAX [Suspect]
     Dates: start: 20060101

REACTIONS (1)
  - BONE DENSITY DECREASED [None]
